FAERS Safety Report 7812381-7 (Version None)
Quarter: 2011Q4

REPORT INFORMATION
  Report Type: 
  Country: None (occurrence: None)
  Receive Date: 20111013
  Receipt Date: 20110908
  Transmission Date: 20120403
  Serious: Yes (Other)
  Sender: FDA-Public Use
  Company Number: DE-GLAXOSMITHKLINE-D0072676A

PATIENT
  Sex: Female

DRUGS (4)
  1. TROBALT [Suspect]
     Dosage: 50MG THREE TIMES PER DAY
     Route: 065
  2. LEVETIRACETAM [Concomitant]
     Dosage: 2000MG PER DAY
     Route: 065
  3. CARBAMAZEPINE [Concomitant]
     Dosage: 800MG PER DAY
     Route: 065
  4. VAGAL NERVE STIMULATOR [Concomitant]
     Route: 065

REACTIONS (8)
  - APHASIA [None]
  - FATIGUE [None]
  - CONFUSIONAL STATE [None]
  - COORDINATION ABNORMAL [None]
  - BRADYPHRENIA [None]
  - URINARY RETENTION [None]
  - MEMORY IMPAIRMENT [None]
  - ASTHENIA [None]
